FAERS Safety Report 11647348 (Version 1)
Quarter: 2015Q4

REPORT INFORMATION
  Report Type: Report from Study
  Country: US (occurrence: US)
  Receive Date: 20151021
  Receipt Date: 20151021
  Transmission Date: 20160304
  Serious: Yes (Other)
  Sender: FDA-Public Use
  Company Number: US-BEH-2015054620

PATIENT
  Age: 21 Year
  Sex: Female

DRUGS (2)
  1. CYTOGAM [Suspect]
     Active Substance: HUMAN CYTOMEGALOVIRUS IMMUNE GLOBULIN
     Indication: CYTOMEGALOVIRUS INFECTION
     Dosage: 6 INFUSIONS; 50 + 10 MG/ML SINGLE DOSE VIALS
     Route: 042
     Dates: start: 20150508, end: 20150915
  2. PLACEBO [Suspect]
     Active Substance: UNSPECIFIED INGREDIENT
     Indication: CYTOMEGALOVIRUS INFECTION
     Dates: start: 20150508, end: 20150915

REACTIONS (4)
  - Caesarean section [None]
  - Premature delivery [Recovered/Resolved]
  - Premature labour [Recovered/Resolved]
  - Exposure during pregnancy [Unknown]

NARRATIVE: CASE EVENT DATE: 20150930
